FAERS Safety Report 6070830-1 (Version None)
Quarter: 2009Q1

REPORT INFORMATION
  Report Type: 
  Country: None (occurrence: None)
  Receive Date: 20090209
  Receipt Date: 20080815
  Transmission Date: 20090719
  Serious: No
  Sender: FDA-Public Use
  Company Number: A0742864A

PATIENT
  Sex: Female

DRUGS (4)
  1. PAXIL [Suspect]
     Indication: DEPRESSION
     Dosage: 20MG PER DAY
     Route: 048
  2. SINEMET [Concomitant]
  3. FOSAMAX [Concomitant]
  4. SYNTHROID [Concomitant]

REACTIONS (1)
  - HYPERHIDROSIS [None]
